FAERS Safety Report 8418246-4 (Version None)
Quarter: 2012Q2

REPORT INFORMATION
  Report Type: 
  Country: None (occurrence: None)
  Receive Date: 20120607
  Receipt Date: 20120529
  Transmission Date: 20120825
  Serious: Yes (Hospitalization)
  Sender: FDA-Public Use
  Company Number: JP-VERTEX PHARMACEUTICALS INC.-AE-2012-008098

PATIENT
  Age: 65 Year
  Sex: Female

DRUGS (8)
  1. RIBAVIRIN [Concomitant]
     Indication: HEPATITIS C
     Route: 048
     Dates: start: 20120229, end: 20120424
  2. PEGINTERFERON ALFA-2B [Concomitant]
     Indication: HEPATITIS C
     Route: 051
     Dates: start: 20120229, end: 20120424
  3. PEGINTERFERON ALFA-2B [Concomitant]
     Route: 051
     Dates: start: 20120502
  4. RIBAVIRIN [Concomitant]
     Route: 048
     Dates: start: 20120502, end: 20120508
  5. RIBAVIRIN [Concomitant]
     Route: 048
     Dates: start: 20120523
  6. RIBAVIRIN [Concomitant]
     Route: 048
     Dates: start: 20120509, end: 20120522
  7. TELAVIC (TELAPREVIR) [Suspect]
     Route: 048
     Dates: start: 20120307, end: 20120424
  8. TELAVIC (TELAPREVIR) [Suspect]
     Indication: HEPATITIS C
     Route: 048
     Dates: start: 20120229, end: 20120306

REACTIONS (1)
  - DECREASED APPETITE [None]
